FAERS Safety Report 7961433-X (Version None)
Quarter: 2011Q4

REPORT INFORMATION
  Report Type: 
  Country: None (occurrence: None)
  Receive Date: 20111207
  Receipt Date: 20111128
  Transmission Date: 20120403
  Serious: Yes (Hospitalization)
  Sender: FDA-Public Use
  Company Number: FR-SANOFI-AVENTIS-2011SA077828

PATIENT
  Age: 67 Year
  Sex: Male

DRUGS (5)
  1. LANTUS [Suspect]
     Dosage: DOSE:100 INTERNATIONAL UNIT(S)/MILLILITRE
     Route: 051
     Dates: start: 20110301
  2. FORLAX [Suspect]
     Indication: CONSTIPATION
     Route: 048
     Dates: start: 20110601, end: 20110902
  3. AMITRIPTYLINE HCL [Suspect]
     Indication: PAIN
     Dosage: DOSE:40 MILLIGRAM(S)/MILLILITRE
     Route: 048
     Dates: start: 20110601, end: 20110902
  4. GLUCOPHAGE [Suspect]
     Dates: start: 20110301
  5. ACARBOSE [Suspect]
     Dates: start: 20110301

REACTIONS (1)
  - HYPONATRAEMIA [None]
